FAERS Safety Report 5238637-2 (Version None)
Quarter: 2007Q1

REPORT INFORMATION
  Report Type: 
  Country: None (occurrence: None)
  Receive Date: 20070214
  Receipt Date: 20070214
  Transmission Date: 20070707
  Serious: Yes (Life-Threatening, Hospitalization)
  Sender: FDA-Public Use
  Company Number: None

PATIENT
  Age: 84 Year
  Sex: Female
  Weight: 65.7716 kg

DRUGS (1)
  1. PLAVIX [Suspect]
     Dosage: 75 MG (1/2 TABLETS DAILY)
     Dates: start: 20060804, end: 20060930

REACTIONS (4)
  - ABASIA [None]
  - DIZZINESS [None]
  - HAEMORRHAGE INTRACRANIAL [None]
  - INNER EAR DISORDER [None]
